FAERS Safety Report 16686931 (Version 1)
Quarter: 2019Q3

REPORT INFORMATION
  Report Type: Spontaneous
  Country: GB (occurrence: GB)
  Receive Date: 20190809
  Receipt Date: 20190809
  Transmission Date: 20191004
  Serious: Yes (Death, Hospitalization)
  Sender: FDA-Public Use
  Company Number: GB-TEVA-2019-GB-1089281

PATIENT
  Age: 86 Year
  Sex: Male

DRUGS (14)
  1. AZITHROMYCIN ANHYDROUS. [Concomitant]
     Active Substance: AZITHROMYCIN ANHYDROUS
     Dosage: 750 MILLIGRAM, 1 WEEKS, MONDAY, WEDNESDAY, FRIDAY
     Route: 048
  2. WARFARIN [Suspect]
     Active Substance: WARFARIN
     Dosage: 1 MILLIGRAM
     Route: 048
  3. CASSIA [Concomitant]
     Dosage: 30 MILLIGRAM, 1 DAYS
     Route: 048
  4. DICLOFENAC [Concomitant]
     Active Substance: DICLOFENAC
     Dosage: 2 DOSAGE FORMS
     Route: 062
  5. LACTULOSE. [Concomitant]
     Active Substance: LACTULOSE
     Dosage: 3.1-3.7G/5ML
     Route: 048
  6. CLOTRIMAZOLE. [Concomitant]
     Active Substance: CLOTRIMAZOLE
     Dosage: 3 DOSAGE FORMS, 1 DAYS
     Route: 061
  7. SALBUTAMOL [Concomitant]
     Active Substance: ALBUTEROL
     Dosage: 2-4PUFFS
     Route: 055
  8. COCODAMOL [Concomitant]
     Active Substance: ACETAMINOPHEN\CODEINE PHOSPHATE
     Dosage: 15MG/500MG. 1-2, FOUR TIMES DAILY
     Route: 048
  9. CARBOCISTEINE [Concomitant]
     Active Substance: CARBOCYSTEINE
     Dosage: 1125 MILLIGRAM
     Route: 048
  10. SPIRONOLACTONE. [Concomitant]
     Active Substance: SPIRONOLACTONE
     Dosage: 12.5 MILLIGRAM, 1 DAYS, IN THE MORNING
     Route: 048
  11. FUROSEMIDE. [Suspect]
     Active Substance: FUROSEMIDE
     Indication: OEDEMA
     Dosage: 40MG IN THE MORNING, 20MG AT LUNCHTIME
     Route: 048
  12. BISOPROLOL [Concomitant]
     Active Substance: BISOPROLOL
     Dosage: 1.25 MILLIGRAM, 1 DAYS,IN THE MORNING
     Route: 048
  13. CALCIUM AND COLECALCIFEROL [Concomitant]
     Dosage: 2 DOSAGE FORMS, COLECALCIFEROL 400UNIT / CALCIUM CARBONATE 1.5G
     Route: 048
  14. LANSOPRAZOLE. [Concomitant]
     Active Substance: LANSOPRAZOLE
     Dosage: 60 MILLIGRAM, 1 DAYS
     Route: 048

REACTIONS (7)
  - Craniocerebral injury [Fatal]
  - Intracranial mass [Fatal]
  - Subarachnoid haemorrhage [Fatal]
  - Brain herniation [Fatal]
  - Fall [Fatal]
  - Subdural haematoma [Fatal]
  - Brain midline shift [Fatal]

NARRATIVE: CASE EVENT DATE: 20190528
